FAERS Safety Report 4478138-2 (Version None)
Quarter: 2004Q4

REPORT INFORMATION
  Report Type: 
  Country: None (occurrence: None)
  Receive Date: 20041018
  Receipt Date: 20041018
  Transmission Date: 20050328
  Serious: Yes (Other)
  Sender: FDA-Public Use
  Company Number: None

PATIENT
  Age: 51 Year
  Sex: Female
  Weight: 52.1637 kg

DRUGS (2)
  1. GLUCOPHAGE [Suspect]
     Indication: DIABETES MELLITUS NON-INSULIN-DEPENDENT
     Dosage: 850 MG BID PO
     Route: 048
     Dates: start: 20041013, end: 20041016
  2. GLUCONORM 0.5 MG [Suspect]
     Dosage: 0.5MG X 2 BID PO
     Route: 048
     Dates: start: 20041013, end: 20041016

REACTIONS (4)
  - BLOOD GLUCOSE INCREASED [None]
  - PHARMACEUTICAL PRODUCT COMPLAINT [None]
  - PHARMACEUTICAL PRODUCT COUNTERFEIT [None]
  - THIRST [None]
